FAERS Safety Report 4844440-5 (Version None)
Quarter: 2005Q4

REPORT INFORMATION
  Report Type: 
  Country: None (occurrence: None)
  Receive Date: 20051202
  Receipt Date: 20051123
  Transmission Date: 20060501
  Serious: Yes (Hospitalization, Other)
  Sender: FDA-Public Use
  Company Number: US-MERCK-0511USA04211

PATIENT
  Age: 52 Year
  Sex: Female
  Weight: 102 kg

DRUGS (1)
  1. VIOXX [Suspect]
     Route: 048
     Dates: start: 20030101, end: 20040101

REACTIONS (12)
  - ANGINA PECTORIS [None]
  - ATRIAL FIBRILLATION [None]
  - BLINDNESS UNILATERAL [None]
  - CEREBROVASCULAR ACCIDENT [None]
  - CHEST PAIN [None]
  - DYSPNOEA [None]
  - HALLUCINATION, AUDITORY [None]
  - HALLUCINATION, VISUAL [None]
  - HEMIPARESIS [None]
  - NERVOUSNESS [None]
  - OVERDOSE [None]
  - STRESS [None]
